FAERS Safety Report 16321504 (Version 1)
Quarter: 2019Q2

REPORT INFORMATION
  Report Type: Spontaneous
  Country: CN (occurrence: CN)
  Receive Date: 20190516
  Receipt Date: 20190516
  Transmission Date: 20190711
  Serious: Yes (Other)
  Sender: FDA-Public Use
  Company Number: CN-FRESENIUS KABI-FK201905513

PATIENT
  Age: 3 Year
  Sex: Female

DRUGS (1)
  1. LEVETIRACETAM (MANUFACTURER UNKNOWN) [Suspect]
     Active Substance: LEVETIRACETAM
     Indication: EPILEPSY
     Route: 065

REACTIONS (2)
  - Seizure cluster [Recovered/Resolved]
  - Therapy non-responder [Recovered/Resolved]
